FAERS Safety Report 9005659 (Version 1)
Quarter: 2013Q1

REPORT INFORMATION
  Report Type: Spontaneous
  Country: US (occurrence: US)
  Receive Date: 20130109
  Receipt Date: 20130109
  Transmission Date: 20140127
  Serious: Yes (Death)
  Sender: FDA-Public Use
  Company Number: US-BAYER-2013-001622

PATIENT
  Age: 31 Year
  Sex: Male

DRUGS (8)
  1. NAPROXEN SODIUM ({= 220 MG) [Suspect]
  2. UNSPECIFIED INGREDIENT [Suspect]
  3. OXYCODONE [Suspect]
  4. ETHANOL [Suspect]
  5. LIDOCAINE [Suspect]
  6. MEPROBAMATE [Suspect]
  7. NICOTINE [Suspect]
  8. HYDROXYZINE [Suspect]

REACTIONS (3)
  - Drug abuse [Fatal]
  - Cardiac arrest [None]
  - Respiratory arrest [None]
